FAERS Safety Report 7125665-5 (Version None)
Quarter: 2010Q4

REPORT INFORMATION
  Report Type: 
  Country: None (occurrence: None)
  Receive Date: 20101129
  Receipt Date: 20101117
  Transmission Date: 20110411
  Serious: Yes (Hospitalization)
  Sender: FDA-Public Use
  Company Number: A0791449A

PATIENT
  Age: 53 Year
  Sex: Female
  Weight: 100 kg

DRUGS (9)
  1. AVANDIA [Suspect]
     Dosage: 4MG PER DAY
     Route: 048
     Dates: start: 20050501, end: 20070601
  2. AVANDARYL [Suspect]
     Route: 048
     Dates: start: 20060307, end: 20061201
  3. ATROVENT [Concomitant]
  4. CLONIDINE [Concomitant]
  5. AVELOX [Concomitant]
  6. METFORMIN [Concomitant]
  7. VASOTEC [Concomitant]
  8. NORVASC [Concomitant]
  9. LIPITOR [Concomitant]

REACTIONS (4)
  - CARDIAC FAILURE CONGESTIVE [None]
  - CORONARY ARTERY DISEASE [None]
  - MYOCARDIAL INFARCTION [None]
  - PULMONARY HYPERTENSION [None]
